FAERS Safety Report 10042208 (Version 1)
Quarter: 2014Q1

REPORT INFORMATION
  Report Type: Spontaneous
  Country: CA (occurrence: CA)
  Receive Date: 20140327
  Receipt Date: 20140327
  Transmission Date: 20141002
  Serious: Yes (Hospitalization)
  Sender: FDA-Public Use
  Company Number: CA-GLAXOSMITHKLINE-A1066931A

PATIENT
  Age: 43 Year
  Sex: Female

DRUGS (2)
  1. TYKERB [Suspect]
     Indication: PRODUCT USED FOR UNKNOWN INDICATION
     Dosage: 1250MG PER DAY
     Route: 048
  2. XELODA [Suspect]
     Indication: PRODUCT USED FOR UNKNOWN INDICATION
     Route: 048

REACTIONS (2)
  - Breast cancer metastatic [Not Recovered/Not Resolved]
  - Malignant neoplasm progression [Unknown]
